FAERS Safety Report 5810309-2 (Version None)
Quarter: 2008Q3

REPORT INFORMATION
  Report Type: 
  Country: None (occurrence: None)
  Receive Date: 20080715
  Receipt Date: 20080314
  Transmission Date: 20090109
  Serious: Yes (Disabling)
  Sender: FDA-Public Use
  Company Number: A0716776A

PATIENT
  Age: 60 Year
  Sex: Male
  Weight: 90.9 kg

DRUGS (1)
  1. IMITREX [Suspect]
     Dosage: 50MG AS REQUIRED
     Dates: end: 20080122

REACTIONS (3)
  - BLINDNESS [None]
  - BLINDNESS UNILATERAL [None]
  - RETINAL ARTERY OCCLUSION [None]
